FAERS Safety Report 18234748 (Version 1)
Quarter: 2020Q3

REPORT INFORMATION
  Report Type: Spontaneous
  Country: CA (occurrence: CA)
  Receive Date: 20200904
  Receipt Date: 20200904
  Transmission Date: 20201103
  Serious: Yes (Hospitalization)
  Sender: FDA-Public Use
  Company Number: CA-HLS-202001309

PATIENT
  Sex: Female

DRUGS (5)
  1. CLOZARIL [Suspect]
     Active Substance: CLOZAPINE
     Indication: SCHIZOPHRENIA
     Route: 048
  2. RISPERIDONE. [Concomitant]
     Active Substance: RISPERIDONE
     Dosage: NOT SPECIFIED
     Route: 065
  3. SAPHRIS [Concomitant]
     Active Substance: ASENAPINE MALEATE
     Route: 065
  4. ARIPIPRAZOLE. [Concomitant]
     Active Substance: ARIPIPRAZOLE
     Dosage: NOT SPECIFIED
     Route: 065
  5. CLOZARIL [Suspect]
     Active Substance: CLOZAPINE
     Indication: EXTRAPYRAMIDAL DISORDER
     Route: 048

REACTIONS (4)
  - Fall [Recovered/Resolved]
  - Soft tissue injury [Recovered/Resolved]
  - Hypotension [Recovered/Resolved]
  - Sedation [Recovered/Resolved]
